FAERS Safety Report 15781933 (Version 1)
Quarter: 2019Q1

REPORT INFORMATION
  Report Type: Spontaneous
  Country: RO (occurrence: RO)
  Receive Date: 20190102
  Receipt Date: 20190102
  Transmission Date: 20190417
  Serious: Yes (Hospitalization, Other)
  Sender: FDA-Public Use
  Company Number: RO-MYLANLABS-2018M1096852

PATIENT
  Age: 81 Year
  Sex: Female

DRUGS (6)
  1. ROSUVASTATIN. [Suspect]
     Active Substance: ROSUVASTATIN
     Indication: PEMPHIGUS
     Dosage: 5 MILLIGRAM, QD
  2. AZATHIOPRINE. [Concomitant]
     Active Substance: AZATHIOPRINE
     Indication: PEMPHIGUS
     Dosage: 50 MILLIGRAM, BID
  3. ZOFENOPRIL [Concomitant]
     Active Substance: ZOFENOPRIL
     Indication: PEMPHIGUS
     Dosage: 30 MILLIGRAM, QD
  4. PREDNISONE. [Suspect]
     Active Substance: PREDNISONE
     Indication: PEMPHIGUS
     Dosage: 1.5 MILLIGRAM/KILOGRAM, BID
  5. MOXONIDINE [Suspect]
     Active Substance: MOXONIDINE
     Indication: PEMPHIGUS
     Dosage: 0.2 MILLIGRAM, BID
  6. CLOPIDOGREL [Concomitant]
     Active Substance: CLOPIDOGREL BISULFATE
     Indication: PEMPHIGUS
     Dosage: 75 MILLIGRAM, QD

REACTIONS (3)
  - Venous thrombosis [Recovered/Resolved]
  - Syncope [Unknown]
  - Peripheral swelling [Unknown]
